FAERS Safety Report 7067600-4 (Version None)
Quarter: 2010Q4

REPORT INFORMATION
  Report Type: 
  Country: None (occurrence: None)
  Receive Date: 20101019
  Receipt Date: 20101011
  Transmission Date: 20110411
  Serious: Yes (Other)
  Sender: FDA-Public Use
  Company Number: 2010SP054422

PATIENT
  Age: 16 Year
  Sex: Male

DRUGS (3)
  1. SAPHRIS [Suspect]
     Indication: BIPOLAR DISORDER
     Dosage: 5 MG; SL
     Route: 060
     Dates: start: 20100401
  2. SAPHRIS [Suspect]
     Indication: SCHIZOPHRENIA
     Dosage: 5 MG; SL
     Route: 060
     Dates: start: 20100401
  3. RISPERDAL [Concomitant]

REACTIONS (2)
  - HALLUCINATION [None]
  - WEIGHT DECREASED [None]
